FAERS Safety Report 20957446 (Version 1)
Quarter: 2022Q2

REPORT INFORMATION
  Report Type: Spontaneous
  Country: TH (occurrence: TH)
  Receive Date: 20220614
  Receipt Date: 20220614
  Transmission Date: 20220720
  Serious: No
  Sender: FDA-Public Use
  Company Number: TH-PFIZER INC-PV202200000554

PATIENT

DRUGS (1)
  1. FILGRASTIM [Suspect]
     Active Substance: FILGRASTIM
     Dosage: UNK

REACTIONS (1)
  - Device mechanical issue [Unknown]
